FAERS Safety Report 12198994 (Version 1)
Quarter: 2016Q1

REPORT INFORMATION
  Report Type: Spontaneous
  Country: GB (occurrence: GB)
  Receive Date: 20160322
  Receipt Date: 20160322
  Transmission Date: 20160526
  Serious: Yes (Hospitalization)
  Sender: FDA-Public Use
  Company Number: GB-DRREDDYS-GER/UKI/16/0077961

PATIENT
  Age: 19 Year
  Sex: Male

DRUGS (1)
  1. FLUOXETINE [Suspect]
     Active Substance: FLUOXETINE HYDROCHLORIDE
     Indication: DEPRESSION
     Route: 048
     Dates: start: 20160212, end: 20160223

REACTIONS (5)
  - Skin discolouration [Unknown]
  - Chromaturia [Unknown]
  - Liver function test abnormal [Unknown]
  - Overdose [Not Recovered/Not Resolved]
  - Eye colour change [Unknown]

NARRATIVE: CASE EVENT DATE: 20160218
